FAERS Safety Report 15444550 (Version 1)
Quarter: 2018Q3

REPORT INFORMATION
  Report Type: Spontaneous
  Country: US (occurrence: US)
  Receive Date: 20180928
  Receipt Date: 20180928
  Transmission Date: 20181010
  Serious: No
  Sender: FDA-Public Use
  Company Number: US-SA-2018SA269722

PATIENT
  Age: 44 Year
  Sex: Female

DRUGS (5)
  1. NORETHINDRONE ACETATE. [Concomitant]
     Active Substance: NORETHINDRONE ACETATE
  2. ALEVE [Concomitant]
     Active Substance: NAPROXEN SODIUM
  3. EXCEDRIN MIGRAINE [Concomitant]
     Active Substance: ACETAMINOPHEN\ASPIRIN\CAFFEINE
  4. AZITHROMYCIN ANHYDROUS. [Concomitant]
     Active Substance: AZITHROMYCIN ANHYDROUS
  5. DUPIXENT [Suspect]
     Active Substance: DUPILUMAB
     Indication: DERMATITIS ATOPIC
     Dosage: 300 MG, QOW
     Route: 058
     Dates: start: 201707

REACTIONS (5)
  - Dry skin [Unknown]
  - Burning sensation [Unknown]
  - Drug dose omission [Unknown]
  - Dermatitis [Unknown]
  - Skin exfoliation [Unknown]
